FAERS Safety Report 8957823 (Version 2)
Quarter: 2013Q1

REPORT INFORMATION
  Report Type: Spontaneous
  Country: US (occurrence: US)
  Receive Date: 20121211
  Receipt Date: 20130129
  Transmission Date: 20140127
  Serious: Yes (Other)
  Sender: FDA-Public Use
  Company Number: US-BIOGENIDEC-2012BI057399

PATIENT
  Age: 62 Year
  Sex: Female

DRUGS (1)
  1. AVONEX [Suspect]
     Indication: MULTIPLE SCLEROSIS
     Route: 030
     Dates: start: 20071012

REACTIONS (4)
  - Retinitis [Unknown]
  - Vertigo [Not Recovered/Not Resolved]
  - Injection site scar [Not Recovered/Not Resolved]
  - Balance disorder [Not Recovered/Not Resolved]
